FAERS Safety Report 5972787-8 (Version None)
Quarter: 2008Q4

REPORT INFORMATION
  Report Type: 
  Country: None (occurrence: None)
  Receive Date: 20081201
  Receipt Date: 20081120
  Transmission Date: 20090506
  Serious: Yes (Other)
  Sender: FDA-Public Use
  Company Number: RO-MERCK-0811USA03618

PATIENT
  Sex: Female
  Weight: 2 kg

DRUGS (3)
  1. DECADRON [Suspect]
     Indication: MATERNAL THERAPY TO ENHANCE FOETAL LUNG MATURITY
     Route: 064
     Dates: start: 20000301
  2. DECADRON [Suspect]
     Route: 064
     Dates: start: 20000301
  3. [THERAPY UNSPECIFIED] [Concomitant]
     Indication: PROPHYLAXIS
     Route: 064
     Dates: start: 20000301

REACTIONS (1)
  - DRUG INEFFECTIVE [None]
